FAERS Safety Report 4656210-1 (Version None)
Quarter: 2005Q2

REPORT INFORMATION
  Report Type: 
  Country: None (occurrence: None)
  Receive Date: 20050509
  Receipt Date: 20050221
  Transmission Date: 20051028
  Serious: No
  Sender: FDA-Public Use
  Company Number: US-GLAXOSMITHKLINE-A0546506A

PATIENT
  Sex: Female

DRUGS (3)
  1. AVANDAMET [Suspect]
     Dosage: 4MG PER DAY
     Route: 048
  2. GLYBURIDE [Concomitant]
  3. METFORMIN [Concomitant]

REACTIONS (1)
  - BLOOD GLUCOSE FLUCTUATION [None]
